FAERS Safety Report 25178423 (Version 1)
Quarter: 2025Q2

REPORT INFORMATION
  Report Type: Spontaneous
  Country: CN (occurrence: CN)
  Receive Date: 20250409
  Receipt Date: 20250409
  Transmission Date: 20250717
  Serious: Yes (Life-Threatening, Other)
  Sender: ASTELLAS
  Company Number: CN-GILEAD-2025-0709709

PATIENT
  Age: 47 Year
  Sex: Female
  Weight: 57.5 kg

DRUGS (1)
  1. AMPHOTERICIN B [Suspect]
     Active Substance: AMPHOTERICIN B
     Indication: Pneumonia cryptococcal
     Dosage: 150 MG, QD
     Route: 042
     Dates: start: 20250402, end: 20250402

REACTIONS (1)
  - Type I hypersensitivity [Recovering/Resolving]

NARRATIVE: CASE EVENT DATE: 20250402
